FAERS Safety Report 8869778 (Version 1)
Quarter: 2012Q4

REPORT INFORMATION
  Report Type: Spontaneous
  Country: US (occurrence: None)
  Receive Date: 20121024
  Receipt Date: 20121024
  Transmission Date: 20130627
  Serious: Yes (Other)
  Sender: FDA-Public Use
  Company Number: NSR_00701_2012

PATIENT
  Age: 66 Year
  Sex: Male

DRUGS (14)
  1. FLUOXETINE [Suspect]
  2. FLUOXETINE [Suspect]
  3. FLUOXETINE [Suspect]
  4. FLUOXETINE [Suspect]
  5. FLUOXETINE [Suspect]
  6. FLUOXETINE [Suspect]
  7. FLUOXETINE [Suspect]
  8. FLUOXETINE [Suspect]
  9. FLUOXETINE [Suspect]
  10. FLUOXETINE [Suspect]
  11. FLUOXETINE [Suspect]
  12. FLUOXETINE [Suspect]
  13. CARBIDOPA/LEVODOPA [Concomitant]
  14. TRAZODONE [Concomitant]

REACTIONS (3)
  - Parkinson^s disease [None]
  - Dysphagia [None]
  - Tardive dyskinesia [None]
